FAERS Safety Report 10656698 (Version 1)
Quarter: 2014Q4

REPORT INFORMATION
  Report Type: Spontaneous
  Country: CN (occurrence: CN)
  Receive Date: 20141217
  Receipt Date: 20141217
  Transmission Date: 20150529
  Serious: Yes (Disabling)
  Sender: FDA-Public Use
  Company Number: CN-ROCHE-1504829

PATIENT

DRUGS (1)
  1. LUCENTIS [Suspect]
     Active Substance: RANIBIZUMAB
     Indication: DIABETIC RETINOPATHY
     Route: 050
     Dates: start: 20140404, end: 20140404

REACTIONS (4)
  - Off label use [Unknown]
  - Ocular vascular disorder [Unknown]
  - Visual impairment [Unknown]
  - Macular ischaemia [Unknown]
